FAERS Safety Report 6069574-1 (Version None)
Quarter: 2009Q1

REPORT INFORMATION
  Report Type: 
  Country: None (occurrence: None)
  Receive Date: 20090206
  Receipt Date: 20090203
  Transmission Date: 20090719
  Serious: Yes (Hospitalization)
  Sender: FDA-Public Use
  Company Number: DE-ABBOTT-09P-062-0501262-00

PATIENT
  Sex: Female

DRUGS (8)
  1. HUMIRA [Suspect]
     Indication: RHEUMATOID ARTHRITIS
     Dates: start: 20070701, end: 20080401
  2. HUMIRA [Suspect]
     Dates: start: 20080501
  3. METHOTREXATE [Concomitant]
     Indication: RHEUMATOID ARTHRITIS
     Dates: start: 20070701, end: 20080401
  4. METHOTREXATE [Concomitant]
     Dates: start: 20080501
  5. LEFLUNOMIDE [Concomitant]
     Indication: RHEUMATOID ARTHRITIS
     Dates: start: 20070701, end: 20080201
  6. ANALGESICS [Concomitant]
     Indication: RHEUMATOID ARTHRITIS
  7. COXIBS [Concomitant]
     Indication: RHEUMATOID ARTHRITIS
  8. GLUCOCORTICOIDS [Concomitant]
     Indication: RHEUMATOID ARTHRITIS

REACTIONS (2)
  - JOINT ARTHROPLASTY [None]
  - KNEE ARTHROPLASTY [None]
